FAERS Safety Report 13878417 (Version 1)
Quarter: 2017Q3

REPORT INFORMATION
  Report Type: Spontaneous
  Country: US (occurrence: US)
  Receive Date: 20170817
  Receipt Date: 20170817
  Transmission Date: 20171127
  Serious: No
  Sender: FDA-Public Use
  Company Number: US-ROCHE-1904724

PATIENT
  Sex: Female

DRUGS (1)
  1. PEGASYS [Suspect]
     Active Substance: PEGINTERFERON ALFA-2A
     Indication: PRODUCT USED FOR UNKNOWN INDICATION
     Dosage: USES 4, 180 MCG VIALS, EVERY MONTH
     Route: 058

REACTIONS (3)
  - Anxiety [Unknown]
  - Injection site erythema [Unknown]
  - Liquid product physical issue [Unknown]
